FAERS Safety Report 19181401 (Version 1)
Quarter: 2021Q2

REPORT INFORMATION
  Report Type: Spontaneous
  Country: GB (occurrence: GB)
  Receive Date: 20210426
  Receipt Date: 20210426
  Transmission Date: 20210717
  Serious: Yes (Other)
  Sender: FDA-Public Use
  Company Number: GB-NOVOPROD-804278

PATIENT
  Age: 80 Year
  Sex: Female

DRUGS (2)
  1. NOVORAPID [Suspect]
     Active Substance: INSULIN ASPART
     Dosage: 1.5IU AS A BOLUS, PUSHED SOME BOLUSES THROUGH 12U IN INCREMENTS OF 2?3U TO REMOVE BUBBLES
     Route: 058
     Dates: start: 20210413
  2. NOVORAPID [Suspect]
     Active Substance: INSULIN ASPART
     Indication: DIABETES MELLITUS
     Dosage: 27 IU, QD
     Route: 058

REACTIONS (3)
  - Diabetic ketoacidosis [Unknown]
  - Liquid product physical issue [Unknown]
  - Stress [Unknown]
